FAERS Safety Report 8325737-3 (Version None)
Quarter: 2012Q2

REPORT INFORMATION
  Report Type: 
  Country: None (occurrence: None)
  Receive Date: 20120427
  Receipt Date: 20120416
  Transmission Date: 20120825
  Serious: Yes (Hospitalization)
  Sender: FDA-Public Use
  Company Number: AMAG201200019

PATIENT
  Age: 57 Year
  Sex: Male
  Weight: 145 kg

DRUGS (17)
  1. ASPIRIN [Concomitant]
  2. FUROSEMIDE (FUROSEMIDE SODIUM) [Concomitant]
  3. LISINOPRIL (LISINOPRIL DIHYDRATE) [Concomitant]
  4. FERAHEME [Suspect]
     Indication: ANAEMIA
     Dosage: 510 MG, SINGLE, IV PUSH
     Route: 042
     Dates: start: 20111129, end: 20111129
  5. FERAHEME [Suspect]
     Indication: RENAL FAILURE CHRONIC
     Dosage: 510 MG, SINGLE, IV PUSH
     Route: 042
     Dates: start: 20111129, end: 20111129
  6. ALLOPURINOL [Concomitant]
  7. ISOSORBIDE DINITRATE [Concomitant]
  8. PHOSLO [Concomitant]
  9. COLCHICINE [Concomitant]
  10. DOXAZOSIN MESYLATE [Concomitant]
  11. HYDRALAZINE HCL [Concomitant]
  12. COMBIVENT [Concomitant]
  13. LOSARTAN POTASSIUM [Concomitant]
  14. SIMVASTATIN [Concomitant]
  15. PREDNISOLONE ACETATE [Concomitant]
  16. COREG [Concomitant]
  17. ADVAIR HFA [Concomitant]

REACTIONS (16)
  - MUSCULOSKELETAL STIFFNESS [None]
  - CARDIAC ARREST [None]
  - PULSELESS ELECTRICAL ACTIVITY [None]
  - PULSE ABSENT [None]
  - LOSS OF CONSCIOUSNESS [None]
  - GAIT DISTURBANCE [None]
  - RENAL FAILURE ACUTE [None]
  - HYPERPARATHYROIDISM [None]
  - DEEP VEIN THROMBOSIS [None]
  - METABOLIC ACIDOSIS [None]
  - FEELING HOT [None]
  - LEUKOCYTOSIS [None]
  - HYPERCALCAEMIA [None]
  - RESPIRATORY FAILURE [None]
  - ANAPHYLACTIC REACTION [None]
  - BONE METABOLISM DISORDER [None]
